FAERS Safety Report 16171290 (Version 2)
Quarter: 2019Q2

REPORT INFORMATION
  Report Type: Spontaneous
  Country: US (occurrence: US)
  Receive Date: 20190408
  Receipt Date: 20190412
  Transmission Date: 20190711
  Serious: Yes (Other)
  Sender: FDA-Public Use
  Company Number: US-ASTRAZENECA-2018SF26618

PATIENT
  Age: 50 Year
  Sex: Female

DRUGS (24)
  1. NEXIUM [Suspect]
     Active Substance: ESOMEPRAZOLE MAGNESIUM
     Route: 048
  2. PRILOSEC [Suspect]
     Active Substance: OMEPRAZOLE MAGNESIUM
     Indication: GASTROOESOPHAGEAL REFLUX DISEASE
     Dosage: 20 MG
     Route: 048
     Dates: start: 2009, end: 2010
  3. FUROSEMIDE. [Concomitant]
     Active Substance: FUROSEMIDE
  4. IBUPROFEN. [Concomitant]
     Active Substance: IBUPROFEN
  5. NEURONTIN [Concomitant]
     Active Substance: GABAPENTIN
  6. LABETALOL [Concomitant]
     Active Substance: LABETALOL\LABETALOL HYDROCHLORIDE
  7. CRESTOR [Concomitant]
     Active Substance: ROSUVASTATIN CALCIUM
  8. RANITIDINE. [Concomitant]
     Active Substance: RANITIDINE
  9. PRILOSEC OTC [Suspect]
     Active Substance: OMEPRAZOLE MAGNESIUM
     Indication: GASTROOESOPHAGEAL REFLUX DISEASE
     Route: 048
     Dates: start: 2005, end: 2019
  10. CYCLOBENZAPRINE. [Concomitant]
     Active Substance: CYCLOBENZAPRINE
  11. LOSARTAN. [Concomitant]
     Active Substance: LOSARTAN
  12. CITALOPRAM [Concomitant]
     Active Substance: CITALOPRAM HYDROBROMIDE
  13. DOXYCYCLINE. [Concomitant]
     Active Substance: DOXYCYCLINE
  14. AMILORIDE [Concomitant]
     Active Substance: AMILORIDE
  15. METFORMIN [Concomitant]
     Active Substance: METFORMIN HYDROCHLORIDE
  16. LYRICA [Concomitant]
     Active Substance: PREGABALIN
  17. PRILOSEC OTC [Suspect]
     Active Substance: OMEPRAZOLE MAGNESIUM
     Indication: GASTROOESOPHAGEAL REFLUX DISEASE
     Route: 048
     Dates: start: 20080908
  18. AMOXICILLIN. [Concomitant]
     Active Substance: AMOXICILLIN
  19. DIFLUCAN [Concomitant]
     Active Substance: FLUCONAZOLE
  20. CLONAZEPAM. [Concomitant]
     Active Substance: CLONAZEPAM
  21. LIPITOR [Concomitant]
     Active Substance: ATORVASTATIN CALCIUM
  22. FAMOTIDINE. [Concomitant]
     Active Substance: FAMOTIDINE
  23. NAPROXEN. [Concomitant]
     Active Substance: NAPROXEN
  24. LORATADINE. [Concomitant]
     Active Substance: LORATADINE

REACTIONS (3)
  - Anxiety [Unknown]
  - Acute kidney injury [Unknown]
  - Chronic kidney disease [Not Recovered/Not Resolved]
